FAERS Safety Report 24823100 (Version 1)
Quarter: 2025Q1

REPORT INFORMATION
  Report Type: Report from Study
  Country: US (occurrence: US)
  Receive Date: 20250109
  Receipt Date: 20250109
  Transmission Date: 20250409
  Serious: Yes (Other)
  Sender: ALEXION PHARMACEUTICALS
  Company Number: US-AstraZeneca-CH-00779129A

PATIENT

DRUGS (4)
  1. OLAPARIB [Suspect]
     Active Substance: OLAPARIB
     Indication: Pancreatic carcinoma
     Dosage: 150 MILLIGRAM, BID
  2. OLAPARIB [Suspect]
     Active Substance: OLAPARIB
     Dosage: 150 MILLIGRAM, BID
     Route: 048
  3. OLAPARIB [Suspect]
     Active Substance: OLAPARIB
     Dosage: 150 MILLIGRAM, BID
  4. OLAPARIB [Suspect]
     Active Substance: OLAPARIB
     Dosage: 150 MILLIGRAM, BID
     Route: 048

REACTIONS (2)
  - Cytopenia [Unknown]
  - Off label use [Unknown]
